FAERS Safety Report 8104292 (Version 2)
Quarter: 2012Q4

REPORT INFORMATION
  Report Type: 
  Country: FR (occurrence: FR)
  Receive Date: 20110824
  Receipt Date: 20121218
  Transmission Date: 20130627
  Serious: Yes (Hospitalization)
  Sender: FDA-Public Use
  Company Number: FR-MERCK-1108FRA00085

PATIENT
  Age: 71 Year
  Sex: Female

DRUGS (7)
  1. XELEVIA [Suspect]
     Dosage: 100 mg, qd
     Route: 048
  2. METFORMIN [Suspect]
     Dosage: 500 mg, qd
     Route: 048
  3. NOVO-NORM [Suspect]
     Dosage: 3 DF, qd
     Route: 048
  4. COLCHICINE [Suspect]
     Dosage: 1 DF, qd
     Route: 048
     Dates: start: 201103
  5. PLAVIX [Suspect]
     Route: 048
  6. LEVOTHYROX [Suspect]
     Dosage: 150 ?g, qd
     Route: 048
  7. BISOPROLOL [Concomitant]
     Route: 048

REACTIONS (2)
  - Hyperuricaemia [Unknown]
  - Vascular purpura [Unknown]
